FAERS Safety Report 6060663-4 (Version None)
Quarter: 2009Q1

REPORT INFORMATION
  Report Type: 
  Country: None (occurrence: None)
  Receive Date: 20090130
  Receipt Date: 20090130
  Transmission Date: 20090719
  Serious: Yes (Other)
  Sender: FDA-Public Use
  Company Number: None

PATIENT
  Age: 17 Year
  Sex: Female
  Weight: 77.1115 kg

DRUGS (1)
  1. PROAIR HFA [Suspect]
     Indication: ASTHMA
     Dosage: 90MCG INHALATION EVERY 6 HRS
     Route: 055
     Dates: start: 20090108, end: 20090109

REACTIONS (4)
  - CHEST PAIN [None]
  - SYNCOPE [None]
  - TACHYCARDIA [None]
  - VOMITING [None]
